FAERS Safety Report 7490596-8 (Version None)
Quarter: 2011Q2

REPORT INFORMATION
  Report Type: 
  Country: None (occurrence: None)
  Receive Date: 20110518
  Receipt Date: 20110518
  Transmission Date: 20111010
  Serious: No
  Sender: FDA-Public Use
  Company Number: None

PATIENT
  Age: 27 Year
  Sex: Female

DRUGS (4)
  1. NORETHINDRONE [Concomitant]
  2. MULTI-VITAMIN [Concomitant]
  3. ZEGRID [Concomitant]
  4. TUBERSOL [Suspect]
     Dosage: INTRADERMAL L FOREARM
     Route: 023

REACTIONS (6)
  - PRURITUS [None]
  - SWOLLEN TONGUE [None]
  - DYSPHAGIA [None]
  - URTICARIA [None]
  - ERYTHEMA [None]
  - EYE SWELLING [None]
